FAERS Safety Report 14691953 (Version 2)
Quarter: 2018Q2

REPORT INFORMATION
  Report Type: Spontaneous
  Country: US (occurrence: US)
  Receive Date: 20180329
  Receipt Date: 20180501
  Transmission Date: 20180711
  Serious: Yes (Hospitalization)
  Sender: FDA-Public Use
  Company Number: US-ROCHE-2095266

PATIENT
  Sex: Female
  Weight: 77.63 kg

DRUGS (1)
  1. ACTEMRA [Suspect]
     Active Substance: TOCILIZUMAB
     Indication: PRODUCT USED FOR UNKNOWN INDICATION
     Dosage: STARTING DOSE: 4MG/KG; 8MG/KG: TOTAL MONTHLY DOSE
     Route: 042
     Dates: start: 2010, end: 20180409

REACTIONS (1)
  - Intestinal perforation [Recovered/Resolved]
